FAERS Safety Report 17012489 (Version 1)
Quarter: 2019Q4

REPORT INFORMATION
  Report Type: Spontaneous
  Country: FR (occurrence: FR)
  Receive Date: 20191108
  Receipt Date: 20191108
  Transmission Date: 20200122
  Serious: Yes (Other)
  Sender: FDA-Public Use
  Company Number: FR-US-PROVELL PHARMACEUTICALS LLC-8205353

PATIENT
  Age: 63 Year
  Sex: Female

DRUGS (3)
  1. LEVOTHYROX NF [Suspect]
     Active Substance: LEVOTHYROXINE SODIUM
     Dosage: ON 26 JUN 2017, RESUMPTION OF LEVOTHYROX 75 MCG WAS MADE TO EVERY DAY.
     Dates: end: 2017
  2. LEVOTHYROX NF [Suspect]
     Active Substance: LEVOTHYROXINE SODIUM
     Indication: HYPOTHYROIDISM
  3. LEVOTHYROX NF [Suspect]
     Active Substance: LEVOTHYROXINE SODIUM
     Dosage: ON 26 MAY 2017, DOSE WAS INCREASED TO 75 MCG ALTERED WITH 100.

REACTIONS (32)
  - Irritability [Unknown]
  - Alopecia [Unknown]
  - Anger [Unknown]
  - Blood thyroid stimulating hormone increased [Recovered/Resolved]
  - Muscle strain [Unknown]
  - Weight increased [Unknown]
  - Hypertrophic cardiomyopathy [Unknown]
  - Blood pressure decreased [Unknown]
  - Stress [Unknown]
  - Asthenia [Unknown]
  - Pallor [Unknown]
  - Headache [Unknown]
  - Arrhythmia [Unknown]
  - Arthralgia [Unknown]
  - Myalgia [Unknown]
  - Mood swings [Unknown]
  - Weight increased [Unknown]
  - Atrial fibrillation [Unknown]
  - Dyspepsia [Unknown]
  - Fatigue [Unknown]
  - Gastrointestinal disorder [Unknown]
  - Thyroxine increased [Unknown]
  - Loss of personal independence in daily activities [Unknown]
  - Depressed mood [Unknown]
  - Vertigo [Unknown]
  - Anxiety [Unknown]
  - Gamma-glutamyltransferase increased [Unknown]
  - Eye disorder [Unknown]
  - Insomnia [Unknown]
  - Memory impairment [Unknown]
  - Dyspnoea [Unknown]
  - Blood creatinine increased [Unknown]

NARRATIVE: CASE EVENT DATE: 201703
